FAERS Safety Report 8012787-X (Version None)
Quarter: 2011Q4

REPORT INFORMATION
  Report Type: 
  Country: None (occurrence: None)
  Receive Date: 20111229
  Receipt Date: 20111215
  Transmission Date: 20120403
  Serious: Yes (Death)
  Sender: FDA-Public Use
  Company Number: US-MYLANLABS-2010S1002672

PATIENT
  Age: 56 Year
  Sex: Female
  Weight: 61.69 kg

DRUGS (8)
  1. TRAZODONE HCL [Concomitant]
  2. VICODIN [Concomitant]
     Dosage: 7.5MG/750MG
  3. NEURONTIN [Concomitant]
  4. MORPHINE SULFATE [Concomitant]
  5. FENTANYL-100 [Suspect]
     Indication: PAIN
     Route: 062
     Dates: start: 20080214, end: 20080216
  6. AMBIEN [Concomitant]
  7. LYRICA [Concomitant]
  8. FLUOXETINE [Concomitant]

REACTIONS (1)
  - TOXICITY TO VARIOUS AGENTS [None]
